FAERS Safety Report 10380263 (Version 1)
Quarter: 2014Q3

REPORT INFORMATION
  Report Type: Spontaneous
  Country: US (occurrence: None)
  Receive Date: 20140811
  Receipt Date: 20140811
  Transmission Date: 20150326
  Serious: Yes (Other)
  Sender: FDA-Public Use
  Company Number: None

PATIENT
  Age: 26 Year
  Sex: Female
  Weight: 63.5 kg

DRUGS (1)
  1. CIPROFLOXACIN 250 MG TAB DR. REDDY^S LAB [Suspect]
     Active Substance: CIPROFLOXACIN
     Indication: URINARY TRACT INFECTION
     Dosage: 2 PILLS TWICE DAILY TAKEN BY MOUTH?7.5 DAYS TOTAL/ 3 DAY GAP
     Route: 048

REACTIONS (8)
  - Feeling abnormal [None]
  - Dizziness [None]
  - Paraesthesia [None]
  - Nausea [None]
  - Headache [None]
  - Hypoaesthesia [None]
  - Pyrexia [None]
  - Tendon disorder [None]

NARRATIVE: CASE EVENT DATE: 20140728
